FAERS Safety Report 9809187 (Version 1)
Quarter: 2014Q1

REPORT INFORMATION
  Report Type: Spontaneous
  Country: US (occurrence: US)
  Receive Date: 20140110
  Receipt Date: 20140110
  Transmission Date: 20141002
  Serious: No
  Sender: FDA-Public Use
  Company Number: US-BAUSCH-BL-2013-005661

PATIENT
  Age: 72 Year
  Sex: Male
  Weight: 77.18 kg

DRUGS (6)
  1. LATANOPROST OPHTHALMIC SOLUTION 0.005% [Suspect]
     Indication: GLAUCOMA
     Dosage: 1 DROP; RIGHT EYE; ONCE DAILY
     Route: 047
     Dates: start: 2011
  2. LATANOPROST OPHTHALMIC SOLUTION 0.005% [Suspect]
     Dosage: 1 DROP; LEFT EYE; ONCE DAILY
     Route: 047
     Dates: start: 2011
  3. VITAMIN D [Concomitant]
  4. CALCIUM [Concomitant]
  5. MULTIVITAMIN [Concomitant]
  6. FISH OIL [Concomitant]

REACTIONS (1)
  - Eye irritation [Recovered/Resolved]
